FAERS Safety Report 21126804 (Version 1)
Quarter: 2022Q3

REPORT INFORMATION
  Report Type: Spontaneous
  Country: US (occurrence: US)
  Receive Date: 20220725
  Receipt Date: 20220725
  Transmission Date: 20221027
  Serious: Yes (Hospitalization)
  Sender: FDA-Public Use
  Company Number: US-BRISTOL-MYERS SQUIBB COMPANY-2022-075101

PATIENT
  Age: 36 Year
  Sex: Female

DRUGS (1)
  1. THALOMID [Suspect]
     Active Substance: THALIDOMIDE
     Indication: Neoplasm malignant
     Dosage: DOSE : UNAVAILABLE;     FREQ : TAKE 1 CAPSULE BY?MOUTH
     Route: 048
     Dates: start: 20220513

REACTIONS (1)
  - Adverse event [Unknown]
